FAERS Safety Report 16162163 (Version 1)
Quarter: 2019Q2

REPORT INFORMATION
  Report Type: Spontaneous
  Country: JP (occurrence: JP)
  Receive Date: 20190405
  Receipt Date: 20190405
  Transmission Date: 20190711
  Serious: Yes (Other)
  Sender: FDA-Public Use
  Company Number: JP-MICRO LABS LIMITED-ML2019-00851

PATIENT
  Age: 8 Year
  Sex: Male

DRUGS (3)
  1. TRANEXAMIC ACID. [Suspect]
     Active Substance: TRANEXAMIC ACID
  2. CEFDINIR. [Suspect]
     Active Substance: CEFDINIR
  3. CARBOCISTEINE [Suspect]
     Active Substance: CARBOCYSTEINE

REACTIONS (1)
  - Stevens-Johnson syndrome [Unknown]
